FAERS Safety Report 4402309-4 (Version None)
Quarter: 2004Q3

REPORT INFORMATION
  Report Type: 
  Country: None (occurrence: None)
  Receive Date: 20040720
  Receipt Date: 20040707
  Transmission Date: 20050211
  Serious: Yes (Congenital Anomaly)
  Sender: FDA-Public Use
  Company Number: GB-GLAXOSMITHKLINE-B0339300A

PATIENT

DRUGS (3)
  1. ZIDOVUDINE [Suspect]
     Dosage: 500MG PER DAY
     Dates: start: 20000101
  2. VIDEX [Suspect]
     Dosage: 400MG PER DAY
     Dates: start: 20000101
  3. NEVIRAPINE [Suspect]
     Indication: HIV INFECTION
     Dosage: 200MG UNKNOWN
     Dates: start: 20000101

REACTIONS (4)
  - CONGENITAL ANOMALY [None]
  - CONGENITAL CENTRAL NERVOUS SYSTEM ANOMALY [None]
  - DRUG EXPOSURE DURING PREGNANCY [None]
  - PULMONARY HYPOPLASIA [None]
